FAERS Safety Report 10556593 (Version 2)
Quarter: 2014Q4

REPORT INFORMATION
  Report Type: Report from Study
  Country: BR (occurrence: BR)
  Receive Date: 20141031
  Receipt Date: 20141114
  Transmission Date: 20150529
  Serious: Yes (Other)
  Sender: FDA-Public Use
  Company Number: BR-ORION CORPORATION ORION PHARMA-ENT 2014-0189

PATIENT
  Sex: Female
  Weight: 60 kg

DRUGS (2)
  1. PROLOPA [Concomitant]
     Active Substance: BENSERAZIDE\LEVODOPA
     Indication: DEMENTIA ALZHEIMER^S TYPE
     Route: 065
  2. COMTAN [Suspect]
     Active Substance: ENTACAPONE
     Indication: TREMOR
     Dosage: STRENGTH: 200 MG
     Route: 048
     Dates: start: 201406

REACTIONS (5)
  - Weight decreased [Not Recovered/Not Resolved]
  - Tooth discolouration [Not Recovered/Not Resolved]
  - Off label use [Unknown]
  - Drug ineffective for unapproved indication [Unknown]
  - Tremor [None]
